FAERS Safety Report 10543404 (Version 1)
Quarter: 2014Q4

REPORT INFORMATION
  Report Type: Spontaneous
  Country: US (occurrence: None)
  Receive Date: 20141023
  Receipt Date: 20141023
  Transmission Date: 20150529
  Serious: Yes (Hospitalization)
  Sender: FDA-Public Use
  Company Number: HYP201410-000077

PATIENT
  Age: 7 Month
  Sex: Male
  Weight: 9.5 kg

DRUGS (2)
  1. ARGININE [Concomitant]
     Active Substance: ARGININE
  2. RAVICTI [Suspect]
     Active Substance: GLYCEROL PHENYLBUTYRATE
     Indication: UREA CYCLE ENZYME DEFICIENCY
     Dates: start: 201407

REACTIONS (10)
  - Urine leukocyte esterase positive [None]
  - Hypophagia [None]
  - Irritability [None]
  - Culture urine positive [None]
  - Leukocytosis [None]
  - Hyperammonaemic crisis [None]
  - Escherichia urinary tract infection [None]
  - Protein urine present [None]
  - Urinary tract infection [None]
  - Blood urine present [None]

NARRATIVE: CASE EVENT DATE: 20140913
